FAERS Safety Report 12939815 (Version 1)
Quarter: 2016Q4

REPORT INFORMATION
  Report Type: Spontaneous
  Country: US (occurrence: US)
  Receive Date: 20161114
  Receipt Date: 20161114
  Transmission Date: 20170207
  Serious: Yes (Other)
  Sender: FDA-Public Use
  Company Number: US-ELI_LILLY_AND_COMPANY-US201607010153

PATIENT
  Age: 62 Year
  Sex: Female
  Weight: 78.46 kg

DRUGS (14)
  1. CYCLOBENZAPRINE [Concomitant]
     Active Substance: CYCLOBENZAPRINE
     Indication: PRODUCT USED FOR UNKNOWN INDICATION
     Dosage: 10 MG, UNK
     Route: 048
     Dates: start: 20110309
  2. LORAZEPAM. [Concomitant]
     Active Substance: LORAZEPAM
     Indication: FIBROMYALGIA
     Dosage: 1 MG, UNK
     Route: 048
     Dates: start: 20100908
  3. CYMBALTA [Suspect]
     Active Substance: DULOXETINE HYDROCHLORIDE
     Indication: FIBROMYALGIA
     Dosage: 60 MG, EACH MORNING
     Route: 048
     Dates: start: 200805, end: 20100810
  4. CYMBALTA [Suspect]
     Active Substance: DULOXETINE HYDROCHLORIDE
     Indication: DEPRESSION
     Dosage: 40 MG, QD
     Dates: start: 20120620
  5. OXYCODONE AND ACETAMINOPHEN [Concomitant]
     Active Substance: ACETAMINOPHEN\OXYCODONE HYDROCHLORIDE
     Indication: ARTHRALGIA
     Dosage: 1 DF, QID
     Route: 048
     Dates: start: 20100817
  6. OXYCODONE AND ACETAMINOPHEN [Concomitant]
     Active Substance: ACETAMINOPHEN\OXYCODONE HYDROCHLORIDE
     Indication: BACK PAIN
  7. WELLBUTRIN [Concomitant]
     Active Substance: BUPROPION HYDROCHLORIDE
     Indication: DEPRESSION
     Dosage: UNK, UNKNOWN
     Route: 065
     Dates: end: 20090506
  8. NAPROXEN. [Concomitant]
     Active Substance: NAPROXEN
     Indication: PRODUCT USED FOR UNKNOWN INDICATION
     Dosage: UNK, PRN
     Route: 065
     Dates: end: 20130107
  9. CYMBALTA [Suspect]
     Active Substance: DULOXETINE HYDROCHLORIDE
     Dosage: 20 MG, QD
     Dates: start: 20120628, end: 20151007
  10. CYMBALTA [Suspect]
     Active Substance: DULOXETINE HYDROCHLORIDE
     Dosage: 120 MG, EACH EVENING
     Route: 048
  11. ZOLPIDEM [Concomitant]
     Active Substance: ZOLPIDEM\ZOLPIDEM TARTRATE
     Indication: SLEEP DISORDER
     Dosage: 10 MG, EACH EVENING
     Route: 048
     Dates: start: 20101220
  12. TRAMADOL. [Concomitant]
     Active Substance: TRAMADOL
     Indication: PRODUCT USED FOR UNKNOWN INDICATION
     Dosage: 100 MG, EACH MORNING
     Route: 065
  13. OMEPRAZOLE. [Concomitant]
     Active Substance: OMEPRAZOLE
     Indication: HELICOBACTER INFECTION
     Dosage: 20 MG, BID
     Route: 048
     Dates: start: 20140917
  14. TOPAMAX [Concomitant]
     Active Substance: TOPIRAMATE
     Indication: HEADACHE
     Dosage: 35 MG, UNK
     Dates: end: 20130107

REACTIONS (19)
  - Dysphoria [Unknown]
  - Dizziness [Unknown]
  - Major depression [Unknown]
  - Headache [Unknown]
  - Suicidal ideation [Unknown]
  - Hyperhidrosis [Unknown]
  - Agitation [Unknown]
  - Affect lability [Unknown]
  - Paraesthesia [Unknown]
  - Irritability [Unknown]
  - Drug withdrawal syndrome [Unknown]
  - Sensory disturbance [Unknown]
  - Nausea [Unknown]
  - Anxiety [Unknown]
  - Tinnitus [Unknown]
  - Fatigue [Unknown]
  - Confusional state [Unknown]
  - Lethargy [Unknown]
  - Insomnia [Unknown]

NARRATIVE: CASE EVENT DATE: 201412
